FAERS Safety Report 5622546-0 (Version None)
Quarter: 2008Q1

REPORT INFORMATION
  Report Type: 
  Country: None (occurrence: None)
  Receive Date: 20080114
  Receipt Date: 20071031
  Transmission Date: 20080703
  Serious: Yes (Other)
  Sender: FDA-Public Use
  Company Number: A03200706263

PATIENT
  Age: 84 Year
  Sex: Female

DRUGS (3)
  1. PLAVIX [Suspect]
     Indication: TRANSIENT ISCHAEMIC ATTACK
     Dosage: 75 MG QD - ORAL
     Route: 048
     Dates: start: 20060901, end: 20060101
  2. ANTIHYPERTENSIVE [Concomitant]
  3. CHOLESTEROL MEDICATION [Concomitant]

REACTIONS (2)
  - ANGIOEDEMA [None]
  - RASH [None]
